FAERS Safety Report 19104383 (Version 1)
Quarter: 2021Q2

REPORT INFORMATION
  Report Type: Spontaneous
  Country: BR (occurrence: BR)
  Receive Date: 20210407
  Receipt Date: 20210407
  Transmission Date: 20210717
  Serious: Yes (Hospitalization, Other)
  Sender: FDA-Public Use
  Company Number: BR-VALIDUS PHARMACEUTICALS LLC-BR-2021VAL001023

PATIENT

DRUGS (2)
  1. CAPTOPRIL. [Suspect]
     Active Substance: CAPTOPRIL
     Indication: PRODUCT USED FOR UNKNOWN INDICATION
     Dosage: UNK
     Route: 064
  2. FUROSEMIDE. [Suspect]
     Active Substance: FUROSEMIDE
     Indication: PRODUCT USED FOR UNKNOWN INDICATION
     Dosage: UNK
     Route: 064

REACTIONS (15)
  - Pulmonary interstitial emphysema syndrome [Recovered/Resolved]
  - Micrognathia [Recovered/Resolved]
  - Polyuria [Recovered/Resolved]
  - Respiratory failure [Recovered/Resolved]
  - Respiratory disorder neonatal [Recovered/Resolved]
  - Hypotonia [Recovered/Resolved]
  - Acute kidney injury [Recovered/Resolved]
  - Use of accessory respiratory muscles [Recovered/Resolved]
  - Foetal exposure during pregnancy [Unknown]
  - Pneumothorax [Recovered/Resolved]
  - Anuria [Recovered/Resolved]
  - Patent ductus arteriosus [Recovered/Resolved]
  - Cardiac failure [Recovered/Resolved]
  - Nail disorder [Recovered/Resolved]
  - Oliguria [Recovered/Resolved]
